FAERS Safety Report 24231931 (Version 1)
Quarter: 2024Q3

REPORT INFORMATION
  Report Type: Report from Study
  Country: KW (occurrence: KW)
  Receive Date: 20240821
  Receipt Date: 20240821
  Transmission Date: 20241016
  Serious: Yes (Hospitalization)
  Sender: BIOVITRUM
  Company Number: KW-AstraZeneca-2022A371532

PATIENT
  Sex: Male

DRUGS (1)
  1. SYNAGIS [Suspect]
     Active Substance: PALIVIZUMAB
     Indication: Respiratory syncytial virus infection
     Dosage: EVERY FOUR WEEKS
     Dates: start: 20221013

REACTIONS (2)
  - Nasal obstruction [Unknown]
  - Hypoxia [Unknown]
